FAERS Safety Report 9939780 (Version 1)
Quarter: 2014Q1

REPORT INFORMATION
  Report Type: Spontaneous
  Country: US (occurrence: US)
  Receive Date: 20140303
  Receipt Date: 20140303
  Transmission Date: 20141002
  Serious: No
  Sender: FDA-Public Use
  Company Number: US-ABBVIE-13P-163-1038787-00

PATIENT
  Sex: Male

DRUGS (6)
  1. HUMIRA [Suspect]
     Indication: COLITIS ULCERATIVE
     Dosage: 160 MG 04 DEC 2012 ; 80 MG 19 DEC 2012; 40 MG 31 DEC 2012; 40 MG EOW ON MONDAY
     Dates: start: 20121204
  2. PENTASA [Concomitant]
     Indication: PRODUCT USED FOR UNKNOWN INDICATION
  3. IMURAN [Concomitant]
     Indication: PRODUCT USED FOR UNKNOWN INDICATION
  4. COUMADIN [Concomitant]
     Indication: PRODUCT USED FOR UNKNOWN INDICATION
     Dosage: 5 MG - 7 MG DAILY DEPENDING ON HIS WEEKLY LABE RESULTS
  5. DOXYCYCLINE [Concomitant]
     Indication: ACNE
  6. ALBUTEROL [Concomitant]
     Indication: ASTHMA
     Dosage: INHALER
     Route: 055

REACTIONS (3)
  - Inappropriate schedule of drug administration [Recovering/Resolving]
  - Colitis ulcerative [Recovering/Resolving]
  - Inappropriate schedule of drug administration [Recovering/Resolving]
